FAERS Safety Report 23721660 (Version 1)
Quarter: 2024Q2

REPORT INFORMATION
  Report Type: Spontaneous
  Country: CH (occurrence: CH)
  Receive Date: 20240409
  Receipt Date: 20240409
  Transmission Date: 20240716
  Serious: Yes (Other)
  Sender: FDA-Public Use
  Company Number: None

PATIENT
  Age: 51 Year
  Sex: Male

DRUGS (5)
  1. METFORMIN [Suspect]
     Active Substance: METFORMIN HYDROCHLORIDE
     Indication: Type 2 diabetes mellitus
     Route: 048
     Dates: start: 20231023
  2. METFORMIN [Suspect]
     Active Substance: METFORMIN HYDROCHLORIDE
     Indication: Type 2 diabetes mellitus
     Dosage: REPORTED TERM; METFORMIN-MEPHA
     Route: 048
     Dates: start: 20231005, end: 20231022
  3. RYBELSUS [Concomitant]
     Active Substance: SEMAGLUTIDE
     Route: 048
     Dates: start: 20231017
  4. TERBINAFINE [Concomitant]
     Active Substance: TERBINAFINE
     Route: 048
     Dates: start: 20231017
  5. ROSUVASTATIN [Concomitant]
     Active Substance: ROSUVASTATIN
     Route: 048
     Dates: start: 202310

REACTIONS (1)
  - Hyperkeratosis [Unknown]

NARRATIVE: CASE EVENT DATE: 20230101
